FAERS Safety Report 14617960 (Version 1)
Quarter: 2018Q1

REPORT INFORMATION
  Report Type: Spontaneous
  Country: US (occurrence: US)
  Receive Date: 20180309
  Receipt Date: 20180309
  Transmission Date: 20180509
  Serious: Yes (Hospitalization)
  Sender: FDA-Public Use
  Company Number: None

PATIENT
  Age: 71 Year
  Sex: Male

DRUGS (14)
  1. MULTIVITAMIN [Concomitant]
     Active Substance: VITAMINS
  2. ATORVASTATIN [Concomitant]
     Active Substance: ATORVASTATIN
  3. GILENYA [Suspect]
     Active Substance: FINGOLIMOD HYDROCHLORIDE
     Indication: MULTIPLE SCLEROSIS
     Route: 048
     Dates: start: 20141011
  4. VITAMIN B12 [Concomitant]
     Active Substance: CYANOCOBALAMIN
  5. COQ10 [Concomitant]
     Active Substance: UBIDECARENONE
  6. OXYBUTYNIN. [Concomitant]
     Active Substance: OXYBUTYNIN CHLORIDE
  7. PREDNISOLONE. [Concomitant]
     Active Substance: PREDNISOLONE
  8. HYDROCO/APAP [Concomitant]
     Active Substance: ACETAMINOPHEN\HYDROCODONE
  9. GABAPENTIN. [Concomitant]
     Active Substance: GABAPENTIN
  10. ATENOLOL. [Concomitant]
     Active Substance: ATENOLOL
  11. ZZZQUIL NIGHTTIME SLEEP-AID [Concomitant]
     Active Substance: DIPHENHYDRAMINE HYDROCHLORIDE
  12. ONDANSETRON [Concomitant]
     Active Substance: ONDANSETRON
  13. DULOXETINE. [Concomitant]
     Active Substance: DULOXETINE
  14. BAYER ASA [Concomitant]

REACTIONS (3)
  - Drug dose omission [None]
  - Infection [None]
  - Muscular weakness [None]

NARRATIVE: CASE EVENT DATE: 20180226
